FAERS Safety Report 8432709 (Version 3)
Quarter: 2012Q4

REPORT INFORMATION
  Report Type: 
  Country: US (occurrence: US)
  Receive Date: 20120229
  Receipt Date: 20120903
  Transmission Date: 20130627
  Serious: No
  Sender: FDA-Public Use
  Company Number: US-PFIZER INC-2012052613

PATIENT
  Age: 58 Year
  Sex: Female
  Weight: 63.49 kg

DRUGS (3)
  1. CHANTIX [Suspect]
     Indication: SMOKING CESSATION THERAPY
     Dosage: 0.5 mg,daily
  2. CHANTIX [Suspect]
     Dosage: 1 mg, UNK
  3. SPIRIVA [Concomitant]
     Indication: CHRONIC OBSTRUCTIVE PULMONARY DISEASE
     Dosage: UNK

REACTIONS (5)
  - Emotional disorder [Unknown]
  - Nightmare [Not Recovered/Not Resolved]
  - Abdominal discomfort [Unknown]
  - Nervousness [Unknown]
  - Abnormal dreams [Unknown]
